FAERS Safety Report 10241823 (Version 2)
Quarter: 2014Q2

REPORT INFORMATION
  Report Type: Spontaneous
  Country: US (occurrence: US)
  Receive Date: 20140617
  Receipt Date: 20140617
  Transmission Date: 20141212
  Serious: Yes (Hospitalization)
  Sender: FDA-Public Use
  Company Number: US-GLAXOSMITHKLINE-A0875653A

PATIENT
  Age: 60 Year
  Sex: Female
  Weight: 87.3 kg

DRUGS (11)
  1. AVANDIA [Suspect]
     Indication: DIABETES MELLITUS
     Route: 048
     Dates: start: 200306, end: 2010
  2. PLAVIX [Concomitant]
  3. ASPIRIN [Concomitant]
  4. PAXIL [Concomitant]
  5. LEVOTHYROXINE [Concomitant]
  6. ZOCOR [Concomitant]
  7. MICRONASE [Concomitant]
  8. HYDROCHLOROTHIAZIDE TRIAMTERENE [Concomitant]
  9. GABAPENTIN [Concomitant]
  10. LOTENSIN [Concomitant]
  11. DARVOCET N [Concomitant]

REACTIONS (1)
  - Cerebrovascular accident [Not Recovered/Not Resolved]
